FAERS Safety Report 10262986 (Version 2)
Quarter: 2014Q2

REPORT INFORMATION
  Report Type: Spontaneous
  Country: US (occurrence: US)
  Receive Date: 20140626
  Receipt Date: 20140626
  Transmission Date: 20141212
  Serious: Yes (Life-Threatening, Hospitalization, Other)
  Sender: FDA-Public Use
  Company Number: US-MYLANLABS-2013S1025167

PATIENT
  Age: 54 Year
  Sex: Female

DRUGS (2)
  1. CLOZAPINE TABLETS [Suspect]
     Route: 048
  2. CHEMOTHERAPEUTICS [Suspect]

REACTIONS (5)
  - Agranulocytosis [Recovered/Resolved]
  - Granulocytopenia [Not Recovered/Not Resolved]
  - Leukopenia [Recovered/Resolved]
  - Sepsis [Not Recovered/Not Resolved]
  - Febrile neutropenia [Not Recovered/Not Resolved]
